FAERS Safety Report 6608966-6 (Version None)
Quarter: 2010Q1

REPORT INFORMATION
  Report Type: 
  Country: None (occurrence: None)
  Receive Date: 20100301
  Receipt Date: 20100217
  Transmission Date: 20100710
  Serious: Yes (Other)
  Sender: FDA-Public Use
  Company Number: JP-PFIZER INC-2010020705

PATIENT
  Age: 60 Year
  Sex: Male

DRUGS (2)
  1. ADRIACIN [Suspect]
     Indication: PLEURAL EFFUSION
     Dosage: 30 MG, ROUTE: PL
     Dates: start: 20100115, end: 20100115
  2. PICIBANIL [Concomitant]
     Dosage: 10 DF, ROUTE: PL
     Dates: start: 20100104, end: 20100115

REACTIONS (3)
  - CONVULSION [None]
  - LOSS OF CONSCIOUSNESS [None]
  - PARALYSIS [None]
